FAERS Safety Report 8559150-0 (Version None)
Quarter: 2012Q3

REPORT INFORMATION
  Report Type: 
  Country: None (occurrence: None)
  Receive Date: 20120802
  Receipt Date: 20120730
  Transmission Date: 20120928
  Serious: Yes (Death)
  Sender: FDA-Public Use
  Company Number: DE-009507513-1207DEU012621

PATIENT

DRUGS (3)
  1. COPEGUS [Suspect]
     Indication: HEPATITIS C
     Route: 048
  2. VICTRELIS [Suspect]
     Indication: HEPATITIS C
     Dosage: 800 MG, TID
     Route: 048
  3. PEGASYS [Suspect]
     Indication: HEPATITIS C
     Route: 058

REACTIONS (1)
  - DEATH [None]
